FAERS Safety Report 20858976 (Version 1)
Quarter: 2022Q2

REPORT INFORMATION
  Report Type: Spontaneous
  Country: US (occurrence: US)
  Receive Date: 20220523
  Receipt Date: 20220523
  Transmission Date: 20220720
  Serious: Yes (Other)
  Sender: FDA-Public Use
  Company Number: US-SA-SAC20220516000887

PATIENT
  Age: 32 Year

DRUGS (1)
  1. ZANTAC [Suspect]
     Active Substance: RANITIDINE HYDROCHLORIDE
     Dosage: UNK; FREQUENCY: OTHER
     Dates: start: 201601, end: 201901

REACTIONS (4)
  - Bladder cancer [Unknown]
  - Renal cancer [Unknown]
  - Hepatic cancer [Unknown]
  - Uterine cancer [Unknown]

NARRATIVE: CASE EVENT DATE: 20160101
